FAERS Safety Report 19083345 (Version 1)
Quarter: 2021Q1

REPORT INFORMATION
  Report Type: Spontaneous
  Country: US (occurrence: US)
  Receive Date: 20210331
  Receipt Date: 20210331
  Transmission Date: 20210420
  Serious: No
  Sender: FDA-Public Use
  Company Number: None

PATIENT
  Age: 53 Year
  Sex: Male

DRUGS (1)
  1. ARIPIPRAZOLE (ARIPIPRAZOLE 10MG TAB) [Suspect]
     Active Substance: ARIPIPRAZOLE
     Dates: start: 20201113, end: 20201209

REACTIONS (1)
  - Akathisia [None]

NARRATIVE: CASE EVENT DATE: 20201204
